FAERS Safety Report 16363452 (Version 1)
Quarter: 2019Q2

REPORT INFORMATION
  Report Type: Spontaneous
  Country: FR (occurrence: FR)
  Receive Date: 20190528
  Receipt Date: 20190528
  Transmission Date: 20190711
  Serious: Yes (Hospitalization)
  Sender: FDA-Public Use
  Company Number: FR-MYLANLABS-2019M1048729

PATIENT
  Age: 51 Year
  Sex: Male
  Weight: 58 kg

DRUGS (6)
  1. CISPLATIN MYLAN [Suspect]
     Active Substance: CISPLATIN
     Indication: METASTATIC SQUAMOUS CELL CARCINOMA
     Dosage: 100 MILLIGRAM/SQ. METER, CYCLE
     Route: 042
     Dates: start: 20180905, end: 20180905
  2. OXYCONTIN [Concomitant]
     Active Substance: OXYCODONE HYDROCHLORIDE
     Dosage: 80 MILLIGRAM, QD
     Route: 048
     Dates: start: 201808
  3. OXYNORMORO [Concomitant]
     Active Substance: OXYCODONE HYDROCHLORIDE
     Dosage: 10 MILLIGRAM, PRN
     Route: 048
     Dates: start: 201808
  4. SOLUPRED                           /00016217/ [Concomitant]
     Active Substance: PREDNISOLONE SODIUM METAZOATE
     Dosage: 60 MILLIGRAM, QD
     Route: 048
     Dates: start: 201808
  5. FLUOROURACIL PFIZER [Suspect]
     Active Substance: FLUOROURACIL
     Indication: METASTATIC SQUAMOUS CELL CARCINOMA
     Dosage: 4000 MILLIGRAM/SQ. METER, CYCLE
     Route: 042
     Dates: start: 20180905, end: 20180909
  6. ERBITUX [Suspect]
     Active Substance: CETUXIMAB
     Indication: METASTATIC SQUAMOUS CELL CARCINOMA
     Dosage: 250 MILLIGRAM/SQ. METER, CYCLE
     Route: 042
     Dates: start: 20180905, end: 20180905

REACTIONS (1)
  - Cardiac tamponade [Recovered/Resolved]

NARRATIVE: CASE EVENT DATE: 20180908
